FAERS Safety Report 8223071-3 (Version None)
Quarter: 2012Q1

REPORT INFORMATION
  Report Type: 
  Country: None (occurrence: None)
  Receive Date: 20120321
  Receipt Date: 20120313
  Transmission Date: 20120608
  Serious: Yes (Hospitalization)
  Sender: FDA-Public Use
  Company Number: BR-BIOGENIDEC-2011BI003095

PATIENT
  Age: 48 Year
  Sex: Female

DRUGS (7)
  1. CLONAZEPAM [Concomitant]
     Indication: MUSCLE SPASTICITY
  2. DIPYRONE INJ [Concomitant]
     Indication: HEADACHE
  3. AVONEX [Suspect]
     Indication: MULTIPLE SCLEROSIS
     Route: 030
     Dates: start: 20110124
  4. CARBAMAZEPINE [Concomitant]
     Indication: MUSCLE SPASTICITY
  5. DORFLEX [Concomitant]
     Indication: HEADACHE
  6. AVONEX [Suspect]
     Route: 030
     Dates: start: 20110124
  7. CLONAZEPAM [Concomitant]
     Indication: ANXIETY

REACTIONS (15)
  - SNEEZING [None]
  - NAUSEA [None]
  - BEDRIDDEN [None]
  - ARTHRALGIA [None]
  - BONE PAIN [None]
  - MALAISE [None]
  - FATIGUE [None]
  - ABDOMINAL PAIN UPPER [None]
  - RETCHING [None]
  - DIZZINESS [None]
  - PERINEAL ABSCESS [None]
  - LIVER DISORDER [None]
  - INJECTION SITE PAIN [None]
  - INFLUENZA LIKE ILLNESS [None]
  - INJECTION SITE DYSAESTHESIA [None]
